FAERS Safety Report 6277718-1 (Version None)
Quarter: 2009Q3

REPORT INFORMATION
  Report Type: 
  Country: None (occurrence: None)
  Receive Date: 20090722
  Receipt Date: 20090714
  Transmission Date: 20100115
  Serious: Yes (Hospitalization)
  Sender: FDA-Public Use
  Company Number: A0797828A

PATIENT
  Age: 55 Year
  Sex: Male
  Weight: 103.2 kg

DRUGS (2)
  1. AVANDIA [Suspect]
     Route: 048
  2. AVANDAMET [Suspect]
     Route: 048
     Dates: start: 20040901, end: 20050801

REACTIONS (2)
  - AMNESIA [None]
  - CEREBROVASCULAR ACCIDENT [None]
